FAERS Safety Report 14266050 (Version 9)
Quarter: 2018Q1

REPORT INFORMATION
  Report Type: Report from Study
  Country: FR (occurrence: FR)
  Receive Date: 20171209
  Receipt Date: 20180312
  Transmission Date: 20180508
  Serious: Yes (Other)
  Sender: FDA-Public Use
  Company Number: FR-BAXTER-2017BAX041052

PATIENT
  Sex: Female

DRUGS (30)
  1. VINCRISTINE [Suspect]
     Active Substance: VINCRISTINE
     Indication: ACUTE LYMPHOCYTIC LEUKAEMIA
     Route: 065
     Dates: start: 20170606, end: 20170606
  2. PEGASPARGASE [Suspect]
     Active Substance: PEGASPARGASE
     Route: 065
     Dates: start: 20170704, end: 20170704
  3. PEGASPARGASE [Suspect]
     Active Substance: PEGASPARGASE
     Route: 065
     Dates: start: 20170926, end: 20170926
  4. HYDROCORTISONE. [Suspect]
     Active Substance: HYDROCORTISONE
     Dosage: 15 MG, UNK
     Route: 037
     Dates: start: 20170303, end: 20171027
  5. DEXAMETHASONE. [Suspect]
     Active Substance: DEXAMETHASONE
     Route: 065
     Dates: start: 20170925, end: 20171015
  6. VINCRISTINE [Suspect]
     Active Substance: VINCRISTINE
     Route: 065
     Dates: start: 20170711, end: 20170711
  7. ARACYTINE [Suspect]
     Active Substance: CYTARABINE
     Route: 037
     Dates: start: 2017, end: 2017
  8. PEGASPARGASE [Suspect]
     Active Substance: PEGASPARGASE
     Indication: ACUTE LYMPHOCYTIC LEUKAEMIA
     Route: 065
     Dates: start: 20170526, end: 20170526
  9. PEGASPARGASE [Suspect]
     Active Substance: PEGASPARGASE
     Dosage: 1425 IU, UNK
     Route: 042
     Dates: start: 20170928, end: 20170928
  10. VINCRISTINE [Suspect]
     Active Substance: VINCRISTINE
     Route: 065
     Dates: start: 20170530, end: 20170530
  11. DOXORUBICIN HYDROCHLORIDE. [Suspect]
     Active Substance: DOXORUBICIN HYDROCHLORIDE
     Indication: ACUTE LYMPHOCYTIC LEUKAEMIA
     Dosage: 13.2 MG, UNK
     Route: 065
     Dates: start: 20170523, end: 20170523
  12. DOXORUBICIN HYDROCHLORIDE. [Suspect]
     Active Substance: DOXORUBICIN HYDROCHLORIDE
     Dosage: 13.2 MG, UNK
     Route: 065
     Dates: start: 20170606, end: 20170606
  13. DOXORUBICIN HYDROCHLORIDE. [Suspect]
     Active Substance: DOXORUBICIN HYDROCHLORIDE
     Dosage: 13.2 MG, UNK
     Route: 065
     Dates: start: 20170530, end: 20170530
  14. METHOTREXATE. [Suspect]
     Active Substance: METHOTREXATE
     Route: 037
     Dates: start: 201705, end: 201705
  15. ARACYTINE [Suspect]
     Active Substance: CYTARABINE
     Indication: ACUTE LYMPHOCYTIC LEUKAEMIA
     Route: 037
     Dates: start: 201705, end: 201705
  16. DEXAMETHASONE. [Suspect]
     Active Substance: DEXAMETHASONE
     Indication: ACUTE LYMPHOCYTIC LEUKAEMIA
     Dosage: 42 MG, UNK
     Route: 065
     Dates: start: 20170909, end: 20171015
  17. VINCRISTINE [Suspect]
     Active Substance: VINCRISTINE
     Route: 065
     Dates: start: 20170704, end: 20170704
  18. VINCRISTINE [Suspect]
     Active Substance: VINCRISTINE
     Route: 065
     Dates: start: 20170925, end: 20171009
  19. METHOTREXATE. [Suspect]
     Active Substance: METHOTREXATE
     Route: 037
     Dates: start: 20170928, end: 2017
  20. DOXORUBICIN HYDROCHLORIDE. [Suspect]
     Active Substance: DOXORUBICIN HYDROCHLORIDE
     Dosage: 14.4 UNK, UNK
     Route: 065
     Dates: start: 20170925, end: 20171009
  21. DOXORUBICIN HYDROCHLORIDE. [Suspect]
     Active Substance: DOXORUBICIN HYDROCHLORIDE
     Dosage: UNK
     Route: 065
  22. ARACYTINE [Suspect]
     Active Substance: CYTARABINE
     Route: 037
     Dates: start: 20170928, end: 20170928
  23. ARACYTINE [Suspect]
     Active Substance: CYTARABINE
     Dosage: UNK
     Route: 037
     Dates: start: 20170503, end: 20171027
  24. HYDROCORTISONE. [Suspect]
     Active Substance: HYDROCORTISONE
     Indication: ACUTE LYMPHOCYTIC LEUKAEMIA
     Route: 037
     Dates: start: 20170928, end: 20170928
  25. VINCRISTINE [Suspect]
     Active Substance: VINCRISTINE
     Route: 065
     Dates: start: 20170523, end: 20170523
  26. 6-MERCAPTOPURINE MONOHYDRATE [Suspect]
     Active Substance: MERCAPTOPURINE
     Indication: ACUTE LYMPHOCYTIC LEUKAEMIA
     Route: 065
  27. METHOTREXATE. [Suspect]
     Active Substance: METHOTREXATE
     Indication: ACUTE LYMPHOCYTIC LEUKAEMIA
     Dosage: 12 MG, UNK
     Route: 037
     Dates: start: 201701, end: 201701
  28. ENDOXAN 1000 MG, POUDRE POUR SOLUTIONINJECTABLE [Suspect]
     Active Substance: CYCLOPHOSPHAMIDE
     Indication: ACUTE LYMPHOCYTIC LEUKAEMIA
     Route: 065
     Dates: start: 20170620, end: 20170620
  29. METHOTREXATE. [Suspect]
     Active Substance: METHOTREXATE
     Dosage: UNK
     Route: 037
     Dates: start: 20161107, end: 20171027
  30. DEXAMETHASONE. [Suspect]
     Active Substance: DEXAMETHASONE
     Dosage: 5 MG, UNK
     Route: 048
     Dates: start: 20161112, end: 20171016

REACTIONS (1)
  - Hyperlipidaemia [Not Recovered/Not Resolved]

NARRATIVE: CASE EVENT DATE: 20171019
